FAERS Safety Report 7741981-8 (Version None)
Quarter: 2011Q3

REPORT INFORMATION
  Report Type: 
  Country: None (occurrence: None)
  Receive Date: 20110912
  Receipt Date: 20110905
  Transmission Date: 20111222
  Serious: Yes (Death, Hospitalization)
  Sender: FDA-Public Use
  Company Number: DE-JNJFOC-20110901223

PATIENT
  Age: 87 Year
  Sex: Female

DRUGS (12)
  1. FUROSEMIDE [Suspect]
     Indication: PRODUCT USED FOR UNKNOWN INDICATION
     Route: 042
     Dates: start: 20080115, end: 20080115
  2. HYDROCHLOROTHIAZID [Concomitant]
     Route: 048
     Dates: start: 20020101, end: 20080115
  3. INSULIN [Concomitant]
     Route: 058
     Dates: start: 20000101, end: 20080115
  4. MOXIFLOXACIN [Interacting]
     Indication: PRODUCT USED FOR UNKNOWN INDICATION
     Route: 048
     Dates: start: 20080115, end: 20080115
  5. ALLOPURINOL [Concomitant]
     Route: 048
     Dates: start: 20020101, end: 20080115
  6. MARCUMAR [Concomitant]
     Route: 048
     Dates: start: 20020101, end: 20080115
  7. RAMIPRIL [Concomitant]
     Route: 048
     Dates: start: 20020101, end: 20080115
  8. ATENOLOL [Concomitant]
     Route: 048
     Dates: start: 20020101, end: 20080115
  9. HALOPERIDOL [Suspect]
     Indication: PRODUCT USED FOR UNKNOWN INDICATION
     Route: 048
     Dates: start: 20080108, end: 20080115
  10. OXAZEPAM [Concomitant]
     Route: 042
     Dates: start: 20080108, end: 20080115
  11. MOLSIDOMIN [Concomitant]
     Route: 048
     Dates: start: 20020101, end: 20080115
  12. ACETYLDIGOXIN [Concomitant]
     Route: 048
     Dates: start: 20020101, end: 20080115

REACTIONS (6)
  - SUDDEN DEATH [None]
  - CYANOSIS [None]
  - DRUG INTERACTION [None]
  - PSYCHOTIC DISORDER [None]
  - GAIT DISTURBANCE [None]
  - DYSPNOEA [None]
